FAERS Safety Report 8972419 (Version 2)
Quarter: 2018Q2

REPORT INFORMATION
  Report Type: Report from Study
  Country: ZA (occurrence: ZA)
  Receive Date: 20121218
  Receipt Date: 20180606
  Transmission Date: 20180711
  Serious: Yes (Death)
  Sender: FDA-Public Use
  Company Number: ZA-ROCHE-1170780

PATIENT
  Sex: Male

DRUGS (8)
  1. CELEBREX [Concomitant]
     Active Substance: CELECOXIB
  2. TITRALAC [Concomitant]
     Active Substance: CALCIUM CARBONATE
  3. EPOETIN BETA [Suspect]
     Active Substance: ERYTHROPOIETIN
     Route: 065
     Dates: start: 20100903
  4. SIMVASTATIN. [Concomitant]
     Active Substance: SIMVASTATIN
  5. EPOETIN BETA [Suspect]
     Active Substance: ERYTHROPOIETIN
     Indication: NEPHROGENIC ANAEMIA
     Route: 065
     Dates: start: 20090812, end: 20100209
  6. METHOXY POLYETHYLENE GLYCOL-EPOETIN BETA. [Suspect]
     Active Substance: METHOXY POLYETHYLENE GLYCOL-EPOETIN BETA
     Indication: NEPHROGENIC ANAEMIA
     Route: 065
     Dates: start: 20100209, end: 20100903
  7. PURICOS [Concomitant]
     Active Substance: ALLOPURINOL
  8. LYRICA [Concomitant]
     Active Substance: PREGABALIN

REACTIONS (2)
  - Haemoglobin abnormal [Unknown]
  - Road traffic accident [Fatal]
